FAERS Safety Report 25929565 (Version 1)
Quarter: 2025Q4

REPORT INFORMATION
  Report Type: Spontaneous
  Country: US (occurrence: US)
  Receive Date: 20251016
  Receipt Date: 20251016
  Transmission Date: 20260117
  Serious: Yes (Other)
  Sender: ROCHE
  Company Number: EU-002147023-NVSC2020US243574

PATIENT
  Age: 64 Year
  Sex: Male

DRUGS (1)
  1. MYCOPHENOLATE MOFETIL [Suspect]
     Active Substance: MYCOPHENOLATE MOFETIL
     Indication: Autoimmune retinopathy
     Route: 065

REACTIONS (2)
  - Leukopenia [Unknown]
  - Off label use [Unknown]
